FAERS Safety Report 9403152 (Version 1)
Quarter: 2013Q3

REPORT INFORMATION
  Report Type: Report from Study
  Country: DK (occurrence: DK)
  Receive Date: 20130716
  Receipt Date: 20130716
  Transmission Date: 20140515
  Serious: Yes (Other)
  Sender: FDA-Public Use
  Company Number: DK-GLAXOSMITHKLINE-B0906845A

PATIENT
  Sex: 0

DRUGS (3)
  1. GEMCITABINE [Suspect]
     Indication: BLADDER CANCER
     Route: 065
  2. LAPATINIB [Suspect]
     Indication: BLADDER CANCER
     Dosage: 750MG PER DAY
     Route: 065
  3. CISPLATIN [Suspect]
     Indication: BLADDER CANCER
     Route: 065

REACTIONS (2)
  - Renal failure [Unknown]
  - Febrile neutropenia [Unknown]
